FAERS Safety Report 4824774-0 (Version None)
Quarter: 2005Q4

REPORT INFORMATION
  Report Type: 
  Country: None (occurrence: None)
  Receive Date: 20051014
  Receipt Date: 20050811
  Transmission Date: 20060501
  Serious: No
  Sender: FDA-Public Use
  Company Number: 2005SP002315

PATIENT
  Age: 49 Year
  Sex: Female
  Weight: 53.0709 kg

DRUGS (1)
  1. LUNESTA [Suspect]
     Dosage: 2 MG;HS;ORAL
     Route: 048
     Dates: start: 20050810

REACTIONS (3)
  - DECREASED APPETITE [None]
  - DYSGEUSIA [None]
  - NAUSEA [None]
